FAERS Safety Report 8999110 (Version 1)
Quarter: 2013Q1

REPORT INFORMATION
  Report Type: Spontaneous
  Country: CH (occurrence: CH)
  Receive Date: 20130103
  Receipt Date: 20130103
  Transmission Date: 20140127
  Serious: Yes (Other)
  Sender: FDA-Public Use
  Company Number: PHHY2012CH121761

PATIENT
  Age: 19 Year
  Sex: Female

DRUGS (1)
  1. SANDIMMUNE NEORAL [Suspect]
     Dosage: 48.4 MG/KG, UNK
     Route: 048

REACTIONS (3)
  - Suicidal ideation [Unknown]
  - Intentional overdose [Unknown]
  - Somnolence [Unknown]
